FAERS Safety Report 9792020 (Version 1)
Quarter: 2014Q1

REPORT INFORMATION
  Report Type: Spontaneous
  Country: US (occurrence: US)
  Receive Date: 20140102
  Receipt Date: 20140102
  Transmission Date: 20141002
  Serious: Yes (Disabling, Other)
  Sender: FDA-Public Use
  Company Number: US-SA-2014SA000145

PATIENT
  Age: 69 Year
  Sex: Female

DRUGS (2)
  1. LANTUS SOLOSTAR [Suspect]
     Indication: TYPE 2 DIABETES MELLITUS
     Dosage: DOSE:70 UNIT(S)
     Route: 051
  2. SOLOSTAR [Concomitant]
     Indication: TYPE 2 DIABETES MELLITUS

REACTIONS (12)
  - Eye disorder [Unknown]
  - Retinopathy [Unknown]
  - Walking aid user [Unknown]
  - Stress [Unknown]
  - Hypertension [Unknown]
  - Joint swelling [Unknown]
  - Hypoaesthesia [Unknown]
  - Accident [Unknown]
  - Adverse event [Unknown]
  - Asthma [Unknown]
  - Dyspnoea [Unknown]
  - Drug dose omission [Unknown]
